FAERS Safety Report 17878475 (Version 2)
Quarter: 2020Q2

REPORT INFORMATION
  Report Type: Spontaneous
  Country: US (occurrence: US)
  Receive Date: 20200610
  Receipt Date: 20200616
  Transmission Date: 20200714
  Serious: No
  Sender: FDA-Public Use
  Company Number: US-JNJFOC-20200531091

PATIENT
  Age: 35 Year
  Sex: Male
  Weight: 82.63 kg

DRUGS (1)
  1. MENS ROGAINE EXTRA STRENGTH [Suspect]
     Active Substance: MINOXIDIL
     Indication: ALOPECIA
     Dosage: 1/2 CAP FULL ONCE A DAY, DATE OF LAST ADMINISTRATION 05/MAY/2020
     Route: 061
     Dates: start: 20200501

REACTIONS (5)
  - Inappropriate schedule of product administration [Unknown]
  - Application site dryness [Recovered/Resolved]
  - Palpitations [Recovered/Resolved]
  - Application site pruritus [Recovered/Resolved]
  - Underdose [Unknown]

NARRATIVE: CASE EVENT DATE: 20200501
